FAERS Safety Report 5091957-7 (Version None)
Quarter: 2006Q3

REPORT INFORMATION
  Report Type: 
  Country: None (occurrence: None)
  Receive Date: 20060825
  Receipt Date: 20060816
  Transmission Date: 20061208
  Serious: Yes (Other)
  Sender: FDA-Public Use
  Company Number: GXKR2006GB04930

PATIENT
  Age: 41 Year
  Sex: Female

DRUGS (1)
  1. TRIMETHOPRIM [Suspect]
     Dosage: 200 MG, BID; ORAL
     Route: 048

REACTIONS (10)
  - ARTHRALGIA [None]
  - CHILLS [None]
  - EYE PAIN [None]
  - HEADACHE [None]
  - INTRAOCULAR PRESSURE INCREASED [None]
  - IRIDOCYCLITIS [None]
  - MALAISE [None]
  - MYALGIA [None]
  - PRURITUS [None]
  - VISUAL DISTURBANCE [None]
